FAERS Safety Report 6071507-9 (Version None)
Quarter: 2009Q1

REPORT INFORMATION
  Report Type: 
  Country: None (occurrence: None)
  Receive Date: 20090206
  Receipt Date: 20090206
  Transmission Date: 20090719
  Serious: Yes (Other)
  Sender: FDA-Public Use
  Company Number: None

PATIENT
  Age: 53 Year
  Sex: Male
  Weight: 78.4723 kg

DRUGS (2)
  1. ACTOS [Suspect]
     Indication: TYPE 2 DIABETES MELLITUS
     Dosage: 30MG DAILY ORAL
     Route: 048
     Dates: start: 20040101
  2. ACTOS [Suspect]
     Indication: TYPE 2 DIABETES MELLITUS
     Dosage: 30MG DAILY ORAL
     Route: 048
     Dates: start: 20090101

REACTIONS (3)
  - HAND FRACTURE [None]
  - OSTEOMYELITIS [None]
  - WOUND INFECTION [None]
